FAERS Safety Report 7356775-5 (Version None)
Quarter: 2011Q1

REPORT INFORMATION
  Report Type: 
  Country: None (occurrence: None)
  Receive Date: 20110316
  Receipt Date: 20110307
  Transmission Date: 20110831
  Serious: Yes (Death)
  Sender: FDA-Public Use
  Company Number: JP-AMGEN-JPNCT2010010629

PATIENT
  Age: 57 Year
  Sex: Male
  Weight: 58 kg

DRUGS (18)
  1. GABAPEN [Concomitant]
     Route: 048
  2. MAGMITT [Concomitant]
     Route: 048
  3. RIVOTRIL [Concomitant]
     Route: 048
  4. OXYCONTIN [Concomitant]
     Route: 048
  5. MYSLEE [Concomitant]
     Route: 048
  6. ZOLOFT [Concomitant]
     Route: 048
  7. ADJUST-A KOWA [Concomitant]
     Route: 048
  8. PANITUMUMAB [Suspect]
     Indication: COLORECTAL CANCER
     Dosage: 6 MG/KG, Q2WK
     Route: 041
     Dates: start: 20100823, end: 20100907
  9. MYSER [Concomitant]
     Route: 062
  10. SAHNE [Concomitant]
     Route: 062
  11. LOCOID [Concomitant]
     Route: 062
  12. PETROLATUM [Concomitant]
     Route: 062
  13. MOBIC [Concomitant]
     Route: 048
  14. PLETAL [Concomitant]
     Route: 048
  15. MUCOSTA [Concomitant]
     Route: 048
  16. HIRUDOID SOFT [Concomitant]
     Route: 062
  17. OXINORM [Concomitant]
     Route: 048
  18. MYSER [Concomitant]
     Route: 062

REACTIONS (1)
  - DEATH [None]
